FAERS Safety Report 6733875-1 (Version None)
Quarter: 2010Q2

REPORT INFORMATION
  Report Type: 
  Country: None (occurrence: None)
  Receive Date: 20100520
  Receipt Date: 20100517
  Transmission Date: 20101027
  Serious: Yes (Hospitalization)
  Sender: FDA-Public Use
  Company Number: GB-ROCHE-697944

PATIENT
  Age: 53 Year
  Sex: Female

DRUGS (6)
  1. ORLISTAT [Suspect]
     Indication: DRUG USE FOR UNKNOWN INDICATION
     Dosage: DRUG WITHDRAWN.
     Route: 048
  2. SITAGLIPTIN PHOSPHATE [Suspect]
     Indication: DRUG USE FOR UNKNOWN INDICATION
     Dosage: DOSE 100 MG, ACTIVE CONSTITUENT MK-0431. DRUG WITHDRAWN
     Route: 048
  3. SITAGLIPTIN PHOSPHATE [Suspect]
     Dosage: 168 DAYS
     Route: 048
     Dates: start: 20090107, end: 20090623
  4. GLICLAZIDE [Concomitant]
  5. LISINOPRIL [Concomitant]
  6. METFORMIN HYDROCHLORIDE [Concomitant]

REACTIONS (8)
  - ABDOMINAL DISTENSION [None]
  - ABDOMINAL PAIN [None]
  - ABDOMINAL PAIN UPPER [None]
  - ABDOMINAL TENDERNESS [None]
  - NAUSEA [None]
  - OEDEMA [None]
  - PANCREATITIS ACUTE [None]
  - VOMITING [None]
